FAERS Safety Report 7637884-X (Version None)
Quarter: 2011Q3

REPORT INFORMATION
  Report Type: 
  Country: None (occurrence: None)
  Receive Date: 20110711
  Receipt Date: 20110331
  Transmission Date: 20111222
  Serious: Yes (Other)
  Sender: FDA-Public Use
  Company Number: IPC201103-000549

PATIENT
  Sex: Female

DRUGS (1)
  1. METOCLOPRAMIDE HYDROCHLORIDE [Suspect]
     Dates: start: 20090901, end: 20091101

REACTIONS (3)
  - EXTRAPYRAMIDAL DISORDER [None]
  - TREMOR [None]
  - TARDIVE DYSKINESIA [None]
